FAERS Safety Report 7865364-5 (Version None)
Quarter: 2011Q4

REPORT INFORMATION
  Report Type: 
  Country: None (occurrence: None)
  Receive Date: 20111028
  Receipt Date: 20101206
  Transmission Date: 20120403
  Serious: No
  Sender: FDA-Public Use
  Company Number: US-GLAXOSMITHKLINE-A0897984A

PATIENT
  Age: 40 Year
  Sex: Female
  Weight: 56.8 kg

DRUGS (4)
  1. ADVAIR DISKUS 100/50 [Suspect]
     Indication: ASTHMA
     Dosage: 1PUFF TWICE PER DAY
     Route: 055
     Dates: start: 20100801, end: 20101207
  2. ALBUTEROL [Concomitant]
  3. FLUTICASONE PROPIONATE [Concomitant]
  4. ZYRTEC [Concomitant]

REACTIONS (12)
  - PALPITATIONS [None]
  - COUGH [None]
  - HEART RATE INCREASED [None]
  - CANDIDIASIS [None]
  - INCREASED APPETITE [None]
  - TREMOR [None]
  - NERVOUSNESS [None]
  - CHEST PAIN [None]
  - WEIGHT INCREASED [None]
  - OROPHARYNGEAL PAIN [None]
  - NASOPHARYNGITIS [None]
  - GASTROOESOPHAGEAL REFLUX DISEASE [None]
